FAERS Safety Report 8188572-5 (Version None)
Quarter: 2012Q1

REPORT INFORMATION
  Report Type: 
  Country: None (occurrence: None)
  Receive Date: 20120306
  Receipt Date: 20120223
  Transmission Date: 20120608
  Serious: Yes (Hospitalization, Other)
  Sender: FDA-Public Use
  Company Number: PHHY2012FR017711

PATIENT
  Age: 54 Year
  Sex: Male
  Weight: 92 kg

DRUGS (10)
  1. VALDOXAN [Suspect]
     Dosage: 50 MG, QD
     Route: 048
     Dates: start: 20120217
  2. VALDOXAN [Suspect]
     Dosage: 50 MG, QD
     Route: 048
     Dates: start: 20111025, end: 20120215
  3. ALLOPURINOL [Concomitant]
     Indication: HYPERURICAEMIA
     Dosage: UNK UKN, UNK
  4. IRBESARTAN [Concomitant]
     Indication: HYPERTENSION
     Dosage: UNK UKN, UNK
  5. VALDOXAN [Suspect]
     Indication: DEPRESSION
     Dosage: 25 MG, QD
     Route: 048
     Dates: start: 20110816, end: 20111024
  6. VALDOXAN [Suspect]
     Dosage: 625 MG, DAILY
     Route: 048
     Dates: start: 20110216, end: 20110216
  7. ATARAX [Suspect]
     Dosage: UNK UKN, UNK
     Dates: start: 20120216, end: 20120216
  8. SIMVASTATIN [Suspect]
     Dosage: UNK UKN, UNK
  9. GLUCOPHAGE [Concomitant]
     Indication: DIABETES MELLITUS
     Dosage: UNK UKN, UNK
  10. ZOLPIDEM [Concomitant]
     Indication: INSOMNIA
     Dosage: UNK UKN, UNK

REACTIONS (3)
  - MULTIPLE DRUG OVERDOSE INTENTIONAL [None]
  - SOMNOLENCE [None]
  - SUICIDE ATTEMPT [None]
